FAERS Safety Report 15536276 (Version 2)
Quarter: 2019Q1

REPORT INFORMATION
  Report Type: Spontaneous
  Country: JP (occurrence: JP)
  Receive Date: 20181022
  Receipt Date: 20190206
  Transmission Date: 20190417
  Serious: Yes (Hospitalization, Other)
  Sender: FDA-Public Use
  Company Number: JP-BAYER-2018-192510

PATIENT
  Age: 42 Year
  Sex: Female
  Weight: 50 kg

DRUGS (7)
  1. BIFONAZOLE [Concomitant]
     Active Substance: BIFONAZOLE
  2. MYSER [DIFLUPREDNATE] [Concomitant]
  3. YAZ [Suspect]
     Active Substance: DROSPIRENONE\ETHINYL ESTRADIOL
     Indication: DYSMENORRHOEA
     Dosage: 1 DF, QD
     Route: 048
     Dates: start: 20180817, end: 201810
  4. SERTRALINE HYDROCHLORIDE. [Concomitant]
     Active Substance: SERTRALINE HYDROCHLORIDE
     Indication: PREMENSTRUAL SYNDROME
     Dosage: 1 DF, QD
     Route: 048
     Dates: start: 20151121, end: 201810
  5. EURAX H [Concomitant]
  6. RESTAMIN CORTISONE [Concomitant]
     Active Substance: DIPHENHYDRAMINE HYDROCHLORIDE\HYDROCORTISONE ACETATE\NEOMYCIN SULFATE
  7. YAZ [Suspect]
     Active Substance: DROSPIRENONE\ETHINYL ESTRADIOL
     Indication: DYSMENORRHOEA
     Dosage: 1 DF, QD
     Route: 048
     Dates: start: 20150328, end: 20180817

REACTIONS (2)
  - Cervix carcinoma [None]
  - Deep vein thrombosis [Unknown]

NARRATIVE: CASE EVENT DATE: 201810
